FAERS Safety Report 15890706 (Version 1)
Quarter: 2019Q1

REPORT INFORMATION
  Report Type: Spontaneous
  Country: CA (occurrence: CA)
  Receive Date: 20190130
  Receipt Date: 20190130
  Transmission Date: 20190417
  Serious: Yes (Other)
  Sender: FDA-Public Use
  Company Number: CA-PFIZER INC-2019037788

PATIENT
  Age: 15 Year
  Sex: Male

DRUGS (2)
  1. ADVIL LIQUI-GELS [Suspect]
     Active Substance: IBUPROFEN
     Indication: TOOTHACHE
     Dosage: 2 DF, UNK
  2. ADVIL [Suspect]
     Active Substance: IBUPROFEN
     Indication: TOOTHACHE
     Dosage: 2 DF, UNK

REACTIONS (2)
  - Hypoaesthesia [Unknown]
  - Overdose [Unknown]
